FAERS Safety Report 9646142 (Version 1)
Quarter: 2013Q4

REPORT INFORMATION
  Report Type: Spontaneous
  Country: JP (occurrence: JP)
  Receive Date: 20131025
  Receipt Date: 20131025
  Transmission Date: 20140711
  Serious: Yes (Other)
  Sender: FDA-Public Use
  Company Number: JP-PFIZER INC-2013300614

PATIENT
  Sex: Female

DRUGS (1)
  1. ZITHROMAC [Suspect]
     Indication: CYSTITIS
     Route: 048

REACTIONS (2)
  - Melaena [Unknown]
  - Diarrhoea [Unknown]
